FAERS Safety Report 12595665 (Version 1)
Quarter: 2016Q3

REPORT INFORMATION
  Report Type: Spontaneous
  Country: FR (occurrence: FR)
  Receive Date: 20160726
  Receipt Date: 20160726
  Transmission Date: 20161109
  Serious: Yes (Other)
  Sender: FDA-Public Use
  Company Number: PHHY2016FR099700

PATIENT
  Age: 24 Year
  Sex: Male

DRUGS (3)
  1. DOLIPRANE [Suspect]
     Active Substance: ACETAMINOPHEN
     Indication: PYREXIA
     Dosage: 1 G, TID
     Route: 048
     Dates: start: 20160111, end: 20160120
  2. AUGMENTIN [Suspect]
     Active Substance: AMOXICILLIN\CLAVULANATE POTASSIUM
     Indication: INFECTION
     Dosage: 2 G, BID
     Route: 048
     Dates: start: 20160111, end: 20160515
  3. IBUPROFEN SANDOZ [Suspect]
     Active Substance: IBUPROFEN
     Indication: PYREXIA
     Dosage: 400 MG, TID
     Route: 048
     Dates: start: 20160111, end: 20160120

REACTIONS (2)
  - Hepatitis [Recovered/Resolved]
  - Mononucleosis syndrome [Unknown]

NARRATIVE: CASE EVENT DATE: 20160115
